FAERS Safety Report 5637598-1 (Version None)
Quarter: 2008Q1

REPORT INFORMATION
  Report Type: 
  Country: None (occurrence: None)
  Receive Date: 20080219
  Receipt Date: 20080131
  Transmission Date: 20080703
  Serious: Yes (Death)
  Sender: FDA-Public Use
  Company Number: 2008S1000063

PATIENT
  Sex: Female

DRUGS (2)
  1. CUBICIN [Suspect]
  2. ZOSYN [Suspect]

REACTIONS (1)
  - DEATH [None]
